FAERS Safety Report 9495524 (Version 1)
Quarter: 2013Q3

REPORT INFORMATION
  Report Type: Spontaneous
  Country: US (occurrence: US)
  Receive Date: 20130903
  Receipt Date: 20130903
  Transmission Date: 20140515
  Serious: No
  Sender: FDA-Public Use
  Company Number: US-SANOFI-AVENTIS-2013SA050859

PATIENT
  Age: 7 Year
  Sex: Male

DRUGS (2)
  1. ALLEGRA [Suspect]
     Route: 048
     Dates: start: 20130515
  2. ALLEGRA [Suspect]
     Dosage: TOOK TWO TABLETS
     Route: 048
     Dates: start: 20130516, end: 20130516

REACTIONS (1)
  - Extra dose administered [Unknown]
